FAERS Safety Report 19032155 (Version 1)
Quarter: 2021Q1

REPORT INFORMATION
  Report Type: Spontaneous
  Country: US (occurrence: US)
  Receive Date: 20210319
  Receipt Date: 20210319
  Transmission Date: 20210420
  Serious: No
  Sender: FDA-Public Use
  Company Number: US-NANJING KING-FRIEND BIOCHEMICAL PHARMACEUTICAL CO. LTD.-2020NKF00077

PATIENT
  Sex: Female

DRUGS (1)
  1. ENOXAPARIN SODIUM. [Suspect]
     Active Substance: ENOXAPARIN SODIUM
     Indication: THROMBOSIS
     Dosage: 90 MG, 1X/DAY, INJECTS ON HER HIPS AND ALTERNATES THE SITE EACH TIME
     Route: 058
     Dates: start: 2020

REACTIONS (4)
  - Injection site bruising [Not Recovered/Not Resolved]
  - Malabsorption from injection site [Unknown]
  - Injection site nodule [Recovering/Resolving]
  - Device safety feature issue [Unknown]

NARRATIVE: CASE EVENT DATE: 2020
